FAERS Safety Report 10154149 (Version 1)
Quarter: 2014Q2

REPORT INFORMATION
  Report Type: Spontaneous
  Country: JP (occurrence: None)
  Receive Date: 20140502
  Receipt Date: 20140502
  Transmission Date: 20141212
  Serious: Yes (Other)
  Sender: FDA-Public Use
  Company Number: FK201401500

PATIENT
  Age: 52 Year
  Sex: Male

DRUGS (4)
  1. ADENOSINE [Suspect]
     Indication: CARDIAC STRESS TEST
     Dosage: UNKNOWN
  2. TECHNETIUM TC 99M TETROFOSMIN (TECHNETIUM TC 99M TETROFOSMIN) [Concomitant]
  3. THALLIUM TL 201 (THALLOUS CHLORIDE (201 TL)) [Concomitant]
  4. TAXUS /00388702/ (TAMOXIFEN CITRATE) [Concomitant]

REACTIONS (4)
  - Arteriospasm coronary [None]
  - Electrocardiogram change [None]
  - Coronary artery occlusion [None]
  - Off label use [None]
